FAERS Safety Report 7678143-9 (Version None)
Quarter: 2011Q3

REPORT INFORMATION
  Report Type: 
  Country: None (occurrence: None)
  Receive Date: 20110811
  Receipt Date: 20110804
  Transmission Date: 20111222
  Serious: Yes (Hospitalization)
  Sender: FDA-Public Use
  Company Number: ES-GENZYME-CAMP-1001618

PATIENT
  Sex: Male
  Weight: 74 kg

DRUGS (8)
  1. LAMIVUDINE [Concomitant]
     Indication: PROPHYLAXIS
     Dosage: 100 MG, QD
     Route: 048
     Dates: start: 20110307
  2. MAGNOGENE [Concomitant]
     Indication: PROPHYLAXIS
     Dosage: 1 UNK, QD
     Route: 048
     Dates: start: 20110405
  3. POSACONAZOLE [Concomitant]
     Indication: PROPHYLAXIS
     Dosage: 200 MG, QD
     Route: 048
     Dates: start: 20110314, end: 20110506
  4. CAMPATH [Suspect]
     Indication: HAEMATOLOGICAL MALIGNANCY
     Dosage: 20 MG, QD
     Route: 065
     Dates: start: 20110308, end: 20110312
  5. CAMPATH [Suspect]
     Indication: STEM CELL TRANSPLANT
  6. RANITIDINE [Concomitant]
     Indication: PROPHYLAXIS
     Dosage: 50 MG, QD
     Route: 048
     Dates: start: 20110306
  7. CYCLOSPORINE [Concomitant]
     Indication: PROPHYLAXIS
     Dosage: 100 MG, QD
     Route: 048
     Dates: start: 20110405
  8. ACYCLOVIR [Concomitant]
     Indication: PROPHYLAXIS
     Dosage: 800 MG, QD
     Route: 048
     Dates: start: 20110308

REACTIONS (2)
  - CYTOMEGALOVIRUS INFECTION [None]
  - ACUTE GRAFT VERSUS HOST DISEASE IN SKIN [None]
